FAERS Safety Report 14841799 (Version 1)
Quarter: 2018Q2

REPORT INFORMATION
  Report Type: Report from Study
  Country: IT (occurrence: IT)
  Receive Date: 20180503
  Receipt Date: 20180503
  Transmission Date: 20180711
  Serious: Yes (Hospitalization)
  Sender: FDA-Public Use
  Company Number: IT-ASTRAZENECA-2018SE56193

PATIENT
  Age: 65 Year
  Sex: Male

DRUGS (7)
  1. DICLOFENAC (DICLOFENAC) [Interacting]
     Active Substance: DICLOFENAC
     Route: 065
  2. DEXTROPROPOXYPHENE/ACETAMINOPHEN/CODEINE [Interacting]
     Active Substance: ACETAMINOPHEN\PROPOXYPHENE
     Route: 065
  3. CODIENE [Suspect]
     Active Substance: CODEINE
  4. TAMSULOSIN [Concomitant]
     Active Substance: TAMSULOSIN
     Route: 065
  5. OMEPRAZOLE. [Suspect]
     Active Substance: OMEPRAZOLE
     Route: 048
  6. SIMVASTATIN. [Interacting]
     Active Substance: SIMVASTATIN
     Route: 065
  7. INFLUENZA VACCINE [Interacting]
     Active Substance: INFLUENZA VIRUS VACCINE
     Route: 065

REACTIONS (4)
  - Rhabdomyolysis [Unknown]
  - Sensory disturbance [Unknown]
  - Drug interaction [Unknown]
  - Infection [Unknown]
